FAERS Safety Report 8555678 (Version 2)
Quarter: 2013Q2

REPORT INFORMATION
  Report Type: Spontaneous
  Country: US (occurrence: None)
  Receive Date: 20120315
  Receipt Date: 20120703
  Transmission Date: 20140414
  Serious: No
  Sender: FDA-Public Use
  Company Number: PHHY2011US40221

PATIENT
  Sex: Female

DRUGS (13)
  1. GILENYA [Suspect]
     Indication: MULTIPLE SCLEROSIS
     Route: 048
     Dates: start: 20110318
  2. METFORMIN HYDROCHLORIDE [Concomitant]
  3. LISINOPRIL (LISINOPRIL) [Concomitant]
  4. HUMULIN (INSULIN HUMAN, INSULIN ISOPHANE, HUMAN BIOSYNTHETIC) [Concomitant]
  5. ADVAIR HFA [Concomitant]
  6. SERTRALINE HYDROCHLORIDE [Concomitant]
  7. ALBUTEROL (SALBUTAMOL) [Concomitant]
  8. SINGULAIR [Concomitant]
  9. AMITRIPTYLINE HYDROCHLORIDE [Concomitant]
  10. LEVOXYL [Concomitant]
  11. HGTC [Concomitant]
  12. CLONAZEPAM (CLONAZEPAM) (CLONAZEPAM) [Concomitant]
  13. ZOCOR (SIMVASTATIN) [Concomitant]

REACTIONS (5)
  - FATIGUE [None]
  - Gastroenteritis viral [None]
  - Vomiting [None]
  - Pyrexia [None]
  - Nausea [None]
